FAERS Safety Report 22053556 (Version 1)
Quarter: 2023Q1

REPORT INFORMATION
  Report Type: Spontaneous
  Country: FR (occurrence: None)
  Receive Date: 20230302
  Receipt Date: 20230302
  Transmission Date: 20230418
  Serious: Yes (Life-Threatening, Other)
  Sender: FDA-Public Use
  Company Number: 2023A040474

PATIENT
  Age: 50 Year
  Sex: Female

DRUGS (10)
  1. OMEPRAZOLE [Suspect]
     Active Substance: OMEPRAZOLE
  2. METHOTREXATE [Suspect]
     Active Substance: METHOTREXATE
     Indication: Rheumatoid arthritis
     Dates: start: 202210
  3. BISOPROLOL [Suspect]
     Active Substance: BISOPROLOL
     Dosage: 1.25
  4. ESCITALOPRAM [Suspect]
     Active Substance: ESCITALOPRAM OXALATE
  5. BETAHISTINE [Suspect]
     Active Substance: BETAHISTINE
  6. ALDACTONE [Suspect]
     Active Substance: SPIRONOLACTONE
  7. CALTRATE VIT D3 [Concomitant]
  8. AMITRIPTYLINE HYDROCHLORIDE [Concomitant]
     Active Substance: AMITRIPTYLINE HYDROCHLORIDE
  9. DOLIPRANE [Concomitant]
     Active Substance: ACETAMINOPHEN
  10. SANDOSTATIN [Concomitant]
     Active Substance: OCTREOTIDE ACETATE

REACTIONS (10)
  - Hypotension [Recovered/Resolved]
  - Tachycardia [Unknown]
  - Gastrointestinal haemorrhage [Unknown]
  - Renal failure [Recovered/Resolved]
  - Oesophageal candidiasis [Unknown]
  - Pancytopenia [Recovering/Resolving]
  - Diarrhoea [Unknown]
  - Folate deficiency [Unknown]
  - Colitis [Unknown]
  - Rotavirus infection [Unknown]

NARRATIVE: CASE EVENT DATE: 20230104
